FAERS Safety Report 5775315-5 (Version None)
Quarter: 2008Q2

REPORT INFORMATION
  Report Type: 
  Country: None (occurrence: None)
  Receive Date: 20080616
  Receipt Date: 20080616
  Transmission Date: 20081010
  Serious: Yes (Hospitalization)
  Sender: FDA-Public Use
  Company Number: None

PATIENT
  Sex: Female
  Weight: 116.7 kg

DRUGS (2)
  1. LISINOPRIL [Suspect]
     Indication: HYPERTENSION
     Dosage: 1 DAILY PO  FEW MONTHS
     Route: 048
  2. METFORMIN 1000 MG [Suspect]
     Indication: DIABETES MELLITUS
     Dosage: 1 TWICE DAILY PO FEW MONTHS
     Route: 048

REACTIONS (4)
  - ANURIA [None]
  - DIALYSIS [None]
  - LACTIC ACIDOSIS [None]
  - RENAL FAILURE ACUTE [None]
